FAERS Safety Report 22345599 (Version 2)
Quarter: 2023Q2

REPORT INFORMATION
  Report Type: Spontaneous
  Country: US (occurrence: None)
  Receive Date: 20230519
  Receipt Date: 20230620
  Transmission Date: 20230722
  Serious: No
  Sender: FDA-Public Use
  Company Number: 2023A114238

PATIENT

DRUGS (1)
  1. SYMBICORT [Suspect]
     Active Substance: BUDESONIDE\FORMOTEROL FUMARATE DIHYDRATE
     Dosage: UNKNOWN160.0UG UNKNOWN
     Route: 055

REACTIONS (4)
  - Dysgeusia [Unknown]
  - Device use issue [Unknown]
  - Drug dose omission by device [Unknown]
  - Device leakage [Unknown]
